FAERS Safety Report 22657982 (Version 1)
Quarter: 2023Q2

REPORT INFORMATION
  Report Type: Spontaneous
  Country: US (occurrence: US)
  Receive Date: 20230630
  Receipt Date: 20230630
  Transmission Date: 20230721
  Serious: No
  Sender: FDA-Public Use
  Company Number: US-BRISTOL-MYERS SQUIBB COMPANY-2023-091650

PATIENT
  Age: 46 Year
  Sex: Female

DRUGS (2)
  1. OPDIVO [Suspect]
     Active Substance: NIVOLUMAB
     Indication: Lung neoplasm malignant
     Dosage: DOSE : 360 MG OPDIVO/83 MG YERVOY;     FREQ : OPDIVO EVERY 3 WEEKS ?YERVOY EVERY 6 WEEKS
     Route: 042
  2. YERVOY [Suspect]
     Active Substance: IPILIMUMAB
     Indication: Lung neoplasm malignant
     Dosage: DOSE : 360 MG OPDIVO/83 MG YERVOY;     FREQ : OPDIVO EVERY 3 WEEKS ?YERVOY EVERY 6 WEEKS
     Route: 042

REACTIONS (1)
  - Off label use [Unknown]
